FAERS Safety Report 6138451-X (Version None)
Quarter: 2009Q1

REPORT INFORMATION
  Report Type: 
  Country: None (occurrence: None)
  Receive Date: 20090327
  Receipt Date: 20090327
  Transmission Date: 20090719
  Serious: No
  Sender: FDA-Public Use
  Company Number: None

PATIENT
  Age: 55 Year
  Sex: Male

DRUGS (1)
  1. KETOROLAC TROMETHAMINE [Suspect]
     Indication: PAIN
     Dates: start: 20090319, end: 20090319

REACTIONS (3)
  - ANAPHYLACTIC REACTION [None]
  - COUGH [None]
  - WHEEZING [None]
